FAERS Safety Report 8385192-4 (Version None)
Quarter: 2012Q2

REPORT INFORMATION
  Report Type: 
  Country: None (occurrence: None)
  Receive Date: 20120525
  Receipt Date: 20120515
  Transmission Date: 20120825
  Serious: Yes (Hospitalization)
  Sender: FDA-Public Use
  Company Number: US-BIOGENIDEC-2011BI033914

PATIENT
  Age: 63 Year
  Sex: Female

DRUGS (4)
  1. AVONEX [Concomitant]
     Indication: MULTIPLE SCLEROSIS
     Route: 030
     Dates: start: 20081101, end: 20080101
  2. TYSABRI [Suspect]
     Indication: MULTIPLE SCLEROSIS
     Route: 042
     Dates: start: 20080701, end: 20080730
  3. TYSABRI [Suspect]
     Route: 042
     Dates: start: 20120430
  4. TYSABRI [Suspect]
     Route: 042
     Dates: start: 20081120, end: 20110819

REACTIONS (9)
  - VASCULAR OCCLUSION [None]
  - STENT PLACEMENT [None]
  - BACK PAIN [None]
  - SPINAL COLUMN INJURY [None]
  - SPINAL COLUMN STENOSIS [None]
  - INTERVERTEBRAL DISC PROTRUSION [None]
  - FALL [None]
  - NERVE ROOT COMPRESSION [None]
  - GAIT DISTURBANCE [None]
